FAERS Safety Report 9605079 (Version 2)
Quarter: 2013Q4

REPORT INFORMATION
  Report Type: Spontaneous
  Country: SE (occurrence: SE)
  Receive Date: 20131008
  Receipt Date: 20131014
  Transmission Date: 20140711
  Serious: Yes (Hospitalization)
  Sender: FDA-Public Use
  Company Number: SE-RANBAXY-2013RR-73802

PATIENT
  Age: 22 Year
  Sex: Female

DRUGS (8)
  1. SERTRALIN RANBAXY 50 MG TABLETT [Suspect]
     Indication: PRODUCT USED FOR UNKNOWN INDICATION
     Dosage: 400 MG
     Route: 065
     Dates: end: 20130513
  2. ABILIFY [Suspect]
     Indication: PRODUCT USED FOR UNKNOWN INDICATION
     Dosage: 180 MG
     Route: 065
     Dates: end: 20130513
  3. EGAZIL [Suspect]
     Indication: PRODUCT USED FOR UNKNOWN INDICATION
     Dosage: 0.6 MG
     Route: 065
     Dates: end: 20130513
  4. NITRAZEPAM RECIP [Suspect]
     Indication: PRODUCT USED FOR UNKNOWN INDICATION
     Dosage: 105 MG
     Route: 065
     Dates: end: 20130513
  5. XANOR [Suspect]
     Indication: PRODUCT USED FOR UNKNOWN INDICATION
     Dosage: 14 MG
     Route: 065
     Dates: end: 20130513
  6. CLOZAPINE ACTAVIS TABLET 100 MG [Suspect]
     Indication: PRODUCT USED FOR UNKNOWN INDICATION
     Dosage: 140 MG
     Route: 065
     Dates: start: 20121218, end: 20130513
  7. TEMESTA [Concomitant]
     Indication: PRODUCT USED FOR UNKNOWN INDICATION
     Dosage: 2 MG
     Route: 065
  8. AKINETON [Concomitant]
     Indication: PRODUCT USED FOR UNKNOWN INDICATION
     Dosage: 10 MG

REACTIONS (3)
  - Depressed level of consciousness [Unknown]
  - Toxicity to various agents [Unknown]
  - Urinary retention [Unknown]
